FAERS Safety Report 13156658 (Version 1)
Quarter: 2017Q1

REPORT INFORMATION
  Report Type: Spontaneous
  Country: US (occurrence: US)
  Receive Date: 20170126
  Receipt Date: 20170126
  Transmission Date: 20170428
  Serious: No
  Sender: FDA-Public Use
  Company Number: US-PRINSTON PHARMACEUTICAL INC.-2016PRN00012

PATIENT
  Age: 63 Year
  Sex: Female
  Weight: 84.35 kg

DRUGS (3)
  1. RISPERIDONE. [Suspect]
     Active Substance: RISPERIDONE
     Indication: BIPOLAR DISORDER
     Dosage: 2 MG, 1X/DAY
     Route: 048
     Dates: start: 20160110, end: 20160119
  2. VITAMIN D [Concomitant]
     Active Substance: CHOLECALCIFEROL
     Dosage: 2000-3000 UNITS, 1X/DAY
     Dates: start: 2015
  3. RISPERIDONE. [Suspect]
     Active Substance: RISPERIDONE
     Indication: BIPOLAR DISORDER
     Dosage: 1.5 MG, 1X/DAY
     Dates: start: 20160120, end: 20160123

REACTIONS (10)
  - Feeling abnormal [Recovering/Resolving]
  - Depression [Recovered/Resolved]
  - Terminal insomnia [Recovered/Resolved]
  - Angina pectoris [Recovering/Resolving]
  - Thinking abnormal [Recovered/Resolved]
  - Sluggishness [Recovering/Resolving]
  - Product substitution issue [Not Recovered/Not Resolved]
  - Asthenia [Recovering/Resolving]
  - Fatigue [Recovering/Resolving]
  - Emotional distress [Recovered/Resolved]

NARRATIVE: CASE EVENT DATE: 201601
